FAERS Safety Report 15906696 (Version 2)
Quarter: 2020Q1

REPORT INFORMATION
  Report Type: Spontaneous
  Country: US (occurrence: US)
  Receive Date: 20190204
  Receipt Date: 20200218
  Transmission Date: 20200409
  Serious: Yes (Other)
  Sender: FDA-Public Use
  Company Number: US-SA-2019SA026508

PATIENT
  Age: 48 Year
  Sex: Female
  Weight: 117 kg

DRUGS (17)
  1. NEOSAR [Concomitant]
     Active Substance: CYCLOPHOSPHAMIDE
     Dosage: UNK
     Dates: start: 20130429, end: 20130429
  2. ATORVASTATIN [Concomitant]
     Active Substance: ATORVASTATIN
     Dosage: 1 DF, QD
     Route: 048
     Dates: start: 20080407
  3. CALCIUM [Concomitant]
     Active Substance: CALCIUM
     Dosage: 1 DF, QD
     Route: 048
  4. PERCOCET [OXYCODONE HYDROCHLORIDE;OXYCODONE TEREPHTHALATE;PARACETAMOL] [Concomitant]
     Active Substance: ACETAMINOPHEN\OXYCODONE HYDROCHLORIDE\OXYCODONE TEREPHTHALATE
     Indication: PAIN
     Dosage: 2 DF, Q4H 5-325
  5. TAXOTERE [Suspect]
     Active Substance: DOCETAXEL
     Dosage: 164 MG, Q3W
     Route: 042
     Dates: start: 20130429, end: 20130429
  6. ASPIRIN [ACETYLSALICYLIC ACID] [Concomitant]
     Active Substance: ASPIRIN
     Dosage: 1 DF, QD
     Route: 048
     Dates: start: 20080407
  7. MOXIFLOXACIN. [Concomitant]
     Active Substance: MOXIFLOXACIN
  8. TAXOTERE [Suspect]
     Active Substance: DOCETAXEL
     Indication: BREAST CANCER FEMALE
     Dosage: 164 MG, Q3W
     Route: 042
     Dates: start: 20130225, end: 20130225
  9. VITAMIN D [VITAMIN D NOS] [Concomitant]
     Active Substance: VITAMIN D NOS
  10. ATIVAN [Concomitant]
     Active Substance: LORAZEPAM
  11. NEOSAR [Concomitant]
     Active Substance: CYCLOPHOSPHAMIDE
     Indication: BREAST CANCER FEMALE
     Dosage: UNK
     Dates: start: 20130225, end: 20130225
  12. METOPROLOL. [Concomitant]
     Active Substance: METOPROLOL
     Dosage: 1 DF, QD
     Route: 048
     Dates: start: 20080407
  13. PROCHLORPERAZINE MALEATE. [Concomitant]
     Active Substance: PROCHLORPERAZINE MALEATE
  14. DEXAMETHASONE. [Concomitant]
     Active Substance: DEXAMETHASONE
  15. HYDROCHLOROTHIAZID [Concomitant]
     Active Substance: HYDROCHLOROTHIAZIDE
     Dosage: 1 DF, QD
     Route: 048
     Dates: start: 20080407
  16. ONDANSETRON [Concomitant]
     Active Substance: ONDANSETRON
  17. LORAZEPAM. [Concomitant]
     Active Substance: LORAZEPAM

REACTIONS (1)
  - Alopecia [Recovering/Resolving]

NARRATIVE: CASE EVENT DATE: 201401
